FAERS Safety Report 8818006 (Version 2)
Quarter: 2012Q4

REPORT INFORMATION
  Report Type: Report from Study
  Country: DE (occurrence: DE)
  Receive Date: 20121001
  Receipt Date: 20121016
  Transmission Date: 20130627
  Serious: No
  Sender: FDA-Public Use
  Company Number: DE-ROCHE-1138476

PATIENT
  Sex: Female
  Weight: 57 kg

DRUGS (1)
  1. CAPECITABINE [Suspect]
     Indication: GASTRIC CANCER
     Route: 048
     Dates: start: 20120321, end: 20120403

REACTIONS (1)
  - Emotional distress [Recovered/Resolved]
